FAERS Safety Report 11627176 (Version 2)
Quarter: 2016Q1

REPORT INFORMATION
  Report Type: Spontaneous
  Country: US (occurrence: US)
  Receive Date: 20151013
  Receipt Date: 20160205
  Transmission Date: 20160525
  Serious: No
  Sender: FDA-Public Use
  Company Number: US-AMGEN-USASP2015013739

PATIENT

DRUGS (3)
  1. NEUPOGEN [Suspect]
     Active Substance: FILGRASTIM
     Indication: PRODUCT USED FOR UNKNOWN INDICATION
     Dosage: UNK
     Route: 065
  2. NEULASTA [Suspect]
     Active Substance: PEGFILGRASTIM
     Indication: PRODUCT USED FOR UNKNOWN INDICATION
     Dosage: UNK
     Route: 065
  3. HALAVEN [Concomitant]
     Active Substance: ERIBULIN MESYLATE
     Indication: NEOPLASM MALIGNANT
     Dosage: UNK

REACTIONS (4)
  - Neuropathy peripheral [Unknown]
  - Pain [Unknown]
  - Hypoaesthesia [Unknown]
  - Headache [Unknown]
